FAERS Safety Report 5492128-2 (Version None)
Quarter: 2007Q4

REPORT INFORMATION
  Report Type: 
  Country: None (occurrence: None)
  Receive Date: 20071018
  Receipt Date: 20071008
  Transmission Date: 20080405
  Serious: Yes (Hospitalization)
  Sender: FDA-Public Use
  Company Number: 2007SP020419

PATIENT
  Age: 55 Year
  Sex: Male

DRUGS (2)
  1. PEG-INTRON [Suspect]
     Indication: HEPATITIS C
     Dosage: ; SC
     Route: 058
     Dates: start: 20070402
  2. RIBAVIRIN [Suspect]
     Indication: HEPATITIS C
     Dosage: ; PO
     Route: 048
     Dates: start: 20070402

REACTIONS (6)
  - CHEST DISCOMFORT [None]
  - MASS [None]
  - PRURITUS [None]
  - RASH [None]
  - SECRETION DISCHARGE [None]
  - SKIN DISCOLOURATION [None]
